FAERS Safety Report 21276264 (Version 1)
Quarter: 2022Q3

REPORT INFORMATION
  Report Type: Spontaneous
  Country: US (occurrence: US)
  Receive Date: 20220831
  Receipt Date: 20220831
  Transmission Date: 20221026
  Serious: No
  Sender: FDA-Public Use
  Company Number: US-ABBVIE-22K-163-4429105-00

PATIENT
  Sex: Female

DRUGS (1)
  1. HUMIRA [Suspect]
     Active Substance: ADALIMUMAB
     Indication: Product used for unknown indication
     Route: 058

REACTIONS (5)
  - Skin mass [Recovered/Resolved]
  - Swelling [Unknown]
  - Peripheral swelling [Recovered/Resolved]
  - Cellulitis [Unknown]
  - Erythema [Unknown]

NARRATIVE: CASE EVENT DATE: 20220518
